FAERS Safety Report 16491173 (Version 1)
Quarter: 2019Q2

REPORT INFORMATION
  Report Type: Spontaneous
  Country: FR (occurrence: FR)
  Receive Date: 20190628
  Receipt Date: 20190628
  Transmission Date: 20190711
  Serious: Yes (Hospitalization)
  Sender: FDA-Public Use
  Company Number: FR-SUN PHARMACEUTICAL INDUSTRIES LTD-2019RR-211789

PATIENT
  Age: 44 Year
  Sex: Female
  Weight: 55 kg

DRUGS (2)
  1. PARACETAMOL [Suspect]
     Active Substance: ACETAMINOPHEN
     Indication: TOXICITY TO VARIOUS AGENTS
     Dosage: ()
     Route: 048
     Dates: start: 20180818
  2. ACTISKENAN 20 MG, GELULE [Suspect]
     Active Substance: MORPHINE SULFATE
     Indication: TOXICITY TO VARIOUS AGENTS
     Route: 048
     Dates: start: 20180818

REACTIONS (2)
  - Coma [Recovered/Resolved]
  - Toxicity to various agents [Recovered/Resolved]

NARRATIVE: CASE EVENT DATE: 20180818
